FAERS Safety Report 11761525 (Version 5)
Quarter: 2016Q1

REPORT INFORMATION
  Report Type: Spontaneous
  Country: US (occurrence: US)
  Receive Date: 20151120
  Receipt Date: 20160127
  Transmission Date: 20160525
  Serious: Yes (Hospitalization)
  Sender: FDA-Public Use
  Company Number: US-UNITED THERAPEUTICS-UNT-2015-014439

PATIENT
  Age: 42 Year
  Sex: Male
  Weight: 99.77 kg

DRUGS (6)
  1. REMODULIN [Suspect]
     Active Substance: TREPROSTINIL
     Dosage: 0.0015 ?G/KG, CONITNUING
     Route: 058
  2. DILTIAZEM [Concomitant]
     Active Substance: DILTIAZEM
     Indication: PRODUCT USED FOR UNKNOWN INDICATION
  3. REMODULIN [Suspect]
     Active Substance: TREPROSTINIL
     Dosage: 0.0095 ?G/KG, CONTINUING
     Route: 058
  4. ADEMPAS [Concomitant]
     Active Substance: RIOCIGUAT
     Indication: PRODUCT USED FOR UNKNOWN INDICATION
  5. LETAIRIS [Concomitant]
     Active Substance: AMBRISENTAN
     Indication: PRODUCT USED FOR UNKNOWN INDICATION
  6. REMODULIN [Suspect]
     Active Substance: TREPROSTINIL
     Indication: PULMONARY HYPERTENSION
     Dosage: 0.0025 ?G/KG/MIN, CONTINUING
     Route: 058
     Dates: start: 20151109

REACTIONS (13)
  - Renal failure [Unknown]
  - Back pain [Unknown]
  - Renal impairment [Unknown]
  - Asthenopia [Unknown]
  - Diarrhoea [Unknown]
  - Headache [Unknown]
  - Abdominal distension [Unknown]
  - Dysuria [Unknown]
  - Infusion site pain [Unknown]
  - Infusion site erythema [Recovered/Resolved]
  - Oedema [Unknown]
  - Infusion site irritation [Recovered/Resolved]
  - Weight increased [Unknown]

NARRATIVE: CASE EVENT DATE: 201511
